FAERS Safety Report 4694808-5 (Version None)
Quarter: 2005Q2

REPORT INFORMATION
  Report Type: 
  Country: None (occurrence: None)
  Receive Date: 20050620
  Receipt Date: 20050604
  Transmission Date: 20051028
  Serious: Yes (Other)
  Sender: FDA-Public Use
  Company Number: DE-JNJFOC-20050505682

PATIENT
  Age: 64 Year
  Sex: Male
  Weight: 76.6 kg

DRUGS (9)
  1. INFLIXIMAB [Suspect]
     Route: 042
  2. SIMVASTATIN [Concomitant]
  3. SIMVASTATIN [Concomitant]
     Indication: HYPERCHOLESTEROLAEMIA
  4. RANIPRIL [Concomitant]
     Indication: HYPERTENSION
     Dosage: 5-10MG
  5. OMEPRAZOLE [Concomitant]
     Indication: GASTRITIS
  6. ISOSORBIDNITRAT [Concomitant]
     Indication: ANGINA PECTORIS
     Dosage: 80-120MG
  7. AMLODIPINE [Concomitant]
     Indication: HYPERTENSION
  8. NEBILET [Concomitant]
     Indication: HYPERTENSION
  9. INDOMETHACIN [Concomitant]

REACTIONS (5)
  - GAMMA-GLUTAMYLTRANSFERASE INCREASED [None]
  - PLEURAL EFFUSION [None]
  - POST PROCEDURAL HAEMORRHAGE [None]
  - RENAL ADENOMA [None]
  - SERUM FERRITIN INCREASED [None]
